FAERS Safety Report 8458527-1 (Version None)
Quarter: 2012Q2

REPORT INFORMATION
  Report Type: 
  Country: None (occurrence: None)
  Receive Date: 20120622
  Receipt Date: 20120618
  Transmission Date: 20120825
  Serious: No
  Sender: FDA-Public Use
  Company Number: US-B.I. PHARMACEUTICALS,INC./RIDGEFIELD-2012-BP-13959BP

PATIENT
  Sex: Female
  Weight: 76 kg

DRUGS (8)
  1. PROLASTIN-C [Concomitant]
     Indication: ALPHA-1 ANTI-TRYPSIN DECREASED
     Dosage: 4436 MG
     Route: 042
  2. OXYBUTYNIN [Concomitant]
     Indication: DYSURIA
     Dosage: 10 MG
     Route: 048
     Dates: start: 20120521
  3. DEXILANT [Concomitant]
     Indication: GASTROOESOPHAGEAL REFLUX DISEASE
     Route: 048
  4. LAMICTAL [Concomitant]
     Indication: EPILEPSY
     Route: 048
  5. ADVAIR DISKUS 100/50 [Concomitant]
     Indication: DYSPNOEA
     Route: 055
  6. ALBUTEROL [Concomitant]
     Indication: DYSPNOEA
     Route: 055
  7. SPIRIVA [Suspect]
     Indication: CHRONIC OBSTRUCTIVE PULMONARY DISEASE
     Dosage: 18 MCG
     Route: 055
     Dates: start: 20030101
  8. FLUOXETINE [Concomitant]
     Indication: DEPRESSION
     Route: 048

REACTIONS (5)
  - SALIVA ALTERED [None]
  - CONSTIPATION [None]
  - TOOTH FRACTURE [None]
  - URINARY RETENTION [None]
  - DRY MOUTH [None]
